FAERS Safety Report 5895114-3 (Version None)
Quarter: 2008Q3

REPORT INFORMATION
  Report Type: 
  Country: None (occurrence: None)
  Receive Date: 20080924
  Receipt Date: 20080912
  Transmission Date: 20090109
  Serious: Yes (Hospitalization)
  Sender: FDA-Public Use
  Company Number: FR-ROCHE-586486

PATIENT
  Sex: Female
  Weight: 62 kg

DRUGS (4)
  1. CAPECITABINE [Suspect]
     Dosage: CUMULATIVE DOSE: 37700 MG
     Route: 048
     Dates: start: 20080715
  2. CAPECITABINE [Suspect]
     Dosage: CUMULATIVE DOSE: 39500 MG
     Route: 048
  3. OXALIPLATIN [Suspect]
     Dosage: CUMULATIVE DOSE: 258 MG
     Route: 042
     Dates: start: 20080715
  4. OXALIPLATIN [Suspect]
     Dosage: CUMULATIVE DOSE 341 MG
     Route: 042

REACTIONS (2)
  - ACUTE RESPIRATORY FAILURE [None]
  - DIARRHOEA [None]
